APPROVED DRUG PRODUCT: ENTEREG
Active Ingredient: ALVIMOPAN
Strength: 12MG **Federal Register determination that product was not discontinued or withdrawn for safety or effectiveness reasons**
Dosage Form/Route: CAPSULE;ORAL
Application: N021775 | Product #001
Applicant: CUBIST PHARMACEUTICALS INC
Approved: May 20, 2008 | RLD: Yes | RS: No | Type: DISCN

PATENTS:
Patent 8946262 | Expires: Feb 12, 2030